FAERS Safety Report 13596406 (Version 1)
Quarter: 2017Q2

REPORT INFORMATION
  Report Type: Spontaneous
  Country: US (occurrence: US)
  Receive Date: 20170530
  Receipt Date: 20170530
  Transmission Date: 20170830
  Serious: No
  Sender: FDA-Public Use
  Company Number: None

PATIENT
  Age: 66 Year
  Sex: Male
  Weight: 77.85 kg

DRUGS (12)
  1. ASPRIN [Concomitant]
     Active Substance: ASPIRIN
  2. METOPROLOL. [Concomitant]
     Active Substance: METOPROLOL
  3. STENT [Concomitant]
  4. PROBIOTIC [Concomitant]
     Active Substance: PROBIOTICS NOS
  5. MULTIVITAMIN [Concomitant]
     Active Substance: VITAMINS
  6. KRILL OIL [Concomitant]
     Active Substance: DIETARY SUPPLEMENT
  7. VITAMIN B12 [Concomitant]
     Active Substance: CYANOCOBALAMIN
  8. LISINOPRIL. [Concomitant]
     Active Substance: LISINOPRIL
  9. CRESTOR [Concomitant]
     Active Substance: ROSUVASTATIN CALCIUM
  10. VITAMIN D3 [Concomitant]
     Active Substance: CHOLECALCIFEROL
  11. TERBINAFINE HCL [Suspect]
     Active Substance: TERBINAFINE HYDROCHLORIDE
     Indication: ONYCHOMYCOSIS
     Dosage: ?          QUANTITY:1 TABLET(S);?
     Route: 048
     Dates: start: 20170330, end: 20170503
  12. PANTOPRAZOLE SODIUM. [Concomitant]
     Active Substance: PANTOPRAZOLE SODIUM

REACTIONS (11)
  - Ageusia [None]
  - Anosmia [None]
  - Abdominal discomfort [None]
  - Nausea [None]
  - Aptyalism [None]
  - Weight decreased [None]
  - Chromaturia [None]
  - Hunger [None]
  - Abdominal pain [None]
  - Abnormal faeces [None]
  - Dysgeusia [None]

NARRATIVE: CASE EVENT DATE: 20170501
